FAERS Safety Report 5271701-0 (Version None)
Quarter: 2007Q1

REPORT INFORMATION
  Report Type: 
  Country: None (occurrence: None)
  Receive Date: 20070321
  Receipt Date: 20070313
  Transmission Date: 20070707
  Serious: Yes (Congenital Anomaly)
  Sender: FDA-Public Use
  Company Number: US-PFIZER INC-2007002041

PATIENT

DRUGS (2)
  1. VIRACEPT [Suspect]
     Indication: HIV TEST POSITIVE
     Dosage: DAILY DOSE:2500MG
     Route: 048
  2. COMBIVIR [Suspect]
     Dosage: TEXT:2 TAB (OR CAP)
     Route: 031
     Dates: start: 20060810

REACTIONS (3)
  - DRUG EXPOSURE DURING PREGNANCY [None]
  - HYDRONEPHROSIS [None]
  - URINARY TRACT MALFORMATION [None]
